FAERS Safety Report 9548241 (Version 1)
Quarter: 2013Q3

REPORT INFORMATION
  Report Type: Spontaneous
  Country: US (occurrence: None)
  Receive Date: 20130923
  Receipt Date: 20130923
  Transmission Date: 20140515
  Serious: No
  Sender: FDA-Public Use
  Company Number: None

PATIENT
  Sex: Female
  Weight: 72.58 kg

DRUGS (3)
  1. POLYETHYLENE GLYCOL [Suspect]
     Indication: SKIN COSMETIC PROCEDURE
  2. VITAMIN D [Concomitant]
  3. IBUPROFEN [Concomitant]

REACTIONS (5)
  - Swollen tongue [None]
  - Lip swelling [None]
  - Oral mucosal blistering [None]
  - Rash [None]
  - Nasal disorder [None]
